FAERS Safety Report 6153919-8 (Version None)
Quarter: 2009Q2

REPORT INFORMATION
  Report Type: 
  Country: None (occurrence: None)
  Receive Date: 20090414
  Receipt Date: 20090403
  Transmission Date: 20091009
  Serious: Yes (Other)
  Sender: FDA-Public Use
  Company Number: US-JNJFOC-20090401955

PATIENT
  Sex: Female
  Weight: 93.9 kg

DRUGS (7)
  1. REMICADE [Suspect]
     Indication: RHEUMATOID ARTHRITIS
     Route: 042
  2. METHOTREXATE [Concomitant]
     Indication: RHEUMATOID ARTHRITIS
  3. FOLIC ACID [Concomitant]
  4. VITAMIN TAB [Concomitant]
  5. SPIRIVA [Concomitant]
     Route: 055
  6. ZOLOFT [Concomitant]
  7. TRICOR [Concomitant]

REACTIONS (1)
  - GALACTORRHOEA [None]
